FAERS Safety Report 5890822-2 (Version None)
Quarter: 2008Q3

REPORT INFORMATION
  Report Type: 
  Country: None (occurrence: None)
  Receive Date: 20080918
  Receipt Date: 20080918
  Transmission Date: 20090109
  Serious: Yes (Other)
  Sender: FDA-Public Use
  Company Number: None

PATIENT
  Age: 50 Year
  Sex: Male
  Weight: 81.4 kg

DRUGS (1)
  1. ETODOLAC [Suspect]
     Indication: MUSCULOSKELETAL PAIN
     Dosage: 400 MG PRN PO
     Route: 048
     Dates: start: 20080626, end: 20080826

REACTIONS (3)
  - ABDOMINAL PAIN UPPER [None]
  - BLOOD GLUCOSE INCREASED [None]
  - PAIN [None]
